FAERS Safety Report 20224306 (Version 1)
Quarter: 2021Q4

REPORT INFORMATION
  Report Type: Spontaneous
  Country: KR (occurrence: KR)
  Receive Date: 20211223
  Receipt Date: 20211223
  Transmission Date: 20220303
  Serious: Yes (Other)
  Sender: FDA-Public Use
  Company Number: KR-009507513-2112KOR006527

PATIENT
  Age: 60 Year
  Sex: Female
  Weight: 62.3 kg

DRUGS (23)
  1. KEYTRUDA [Suspect]
     Active Substance: PEMBROLIZUMAB
     Indication: Endometrial cancer
     Dosage: 200 MILLIGRAM
     Dates: start: 20210104, end: 20210104
  2. KEYTRUDA [Suspect]
     Active Substance: PEMBROLIZUMAB
     Dosage: 200 MILLIGRAM
     Dates: start: 20210209, end: 20210209
  3. KEYTRUDA [Suspect]
     Active Substance: PEMBROLIZUMAB
     Dosage: 200 MILLIGRAM
     Dates: start: 20210326, end: 20210326
  4. KEYTRUDA [Suspect]
     Active Substance: PEMBROLIZUMAB
     Dosage: 200 MILLIGRAM
     Dates: start: 20210416, end: 20210416
  5. KEYTRUDA [Suspect]
     Active Substance: PEMBROLIZUMAB
     Dosage: 200 MILLIGRAM
     Dates: start: 20210507, end: 20210507
  6. KEYTRUDA [Suspect]
     Active Substance: PEMBROLIZUMAB
     Dosage: 200 MILLIGRAM
     Dates: start: 20210528, end: 20210528
  7. KEYTRUDA [Suspect]
     Active Substance: PEMBROLIZUMAB
     Dosage: 200 MILLIGRAM
     Dates: start: 20210625, end: 20210625
  8. KEYTRUDA [Suspect]
     Active Substance: PEMBROLIZUMAB
     Dosage: 200 MILLIGRAM
     Dates: start: 20210717, end: 20210717
  9. LENVATINIB MESYLATE [Suspect]
     Active Substance: LENVATINIB MESYLATE
     Indication: Endometrial cancer
     Dosage: 20 MILLIGRAM, QD
     Route: 048
     Dates: start: 20210104, end: 20210124
  10. LENVATINIB MESYLATE [Suspect]
     Active Substance: LENVATINIB MESYLATE
     Dosage: 10 MILLIGRAM, QD
     Route: 048
     Dates: start: 20210209, end: 20210814
  11. NORVASC [Concomitant]
     Active Substance: AMLODIPINE BESYLATE
     Indication: Hypertension
     Dosage: 1 MILLIGRAM, DAILY
     Route: 048
     Dates: start: 20180610
  12. ENTELON [Concomitant]
     Indication: Lymphoedema
     Dosage: 2 TABLETS DAILY
     Route: 048
     Dates: start: 20180713
  13. VENITOL [Concomitant]
     Indication: Lymphoedema
     Dosage: 2 TABLETS DAILY
     Route: 048
     Dates: start: 20200601
  14. DONG A GASTER [Concomitant]
     Indication: Prophylaxis
     Dosage: 2 TABLET, QD
     Route: 048
     Dates: start: 20210124
  15. PROBIOTICS NOS [Concomitant]
     Active Substance: PROBIOTICS NOS
     Indication: Prophylaxis
     Dosage: 2 CAPSULES DAILY
     Route: 048
     Dates: start: 20210103
  16. NEURONTIN [Concomitant]
     Active Substance: GABAPENTIN
     Indication: Peripheral sensory neuropathy
     Dosage: 3 CAPSULES DAILY
     Route: 048
     Dates: start: 20210624
  17. DIFUCO [Concomitant]
     Indication: Palmoplantar keratoderma
     Dosage: 1 GRAM DAILY
     Route: 062
     Dates: start: 20210126
  18. HANMI UREA [Concomitant]
     Indication: Palmoplantar keratoderma
     Dosage: 1 GRAM DAILY
     Route: 062
     Dates: start: 20210126
  19. TRESTAN [CYANOCOBALAMIN] [Concomitant]
     Indication: Decreased appetite
     Dosage: 1 CAPSULE DAILY
     Route: 048
     Dates: start: 20210201
  20. ALBUMIN HUMAN [Concomitant]
     Active Substance: ALBUMIN HUMAN
     Indication: Prophylaxis
     Dosage: 1 ^BTL^ DAILY
     Route: 042
     Dates: start: 20210717, end: 20210717
  21. KETOTOP EL [Concomitant]
     Indication: Peripheral sensory neuropathy
     Dosage: 30 MILLIGRAM DAILY
     Route: 062
     Dates: start: 20210625
  22. LEVOTHYROXINE SODIUM [Concomitant]
     Active Substance: LEVOTHYROXINE SODIUM
     Indication: Hypothyroidism
     Dosage: 1 TABLET DAILY
     Route: 048
     Dates: start: 20210625
  23. SILODOSIN [Concomitant]
     Active Substance: SILODOSIN
     Indication: Urinary tract pain
     Dosage: 1 TABLET DAILY
     Route: 048
     Dates: start: 20210626

REACTIONS (3)
  - Malignant neoplasm progression [Not Recovered/Not Resolved]
  - Hyperkalaemia [Recovered/Resolved]
  - Flank pain [Not Recovered/Not Resolved]

NARRATIVE: CASE EVENT DATE: 20210727
